FAERS Safety Report 6057966-6 (Version None)
Quarter: 2009Q1

REPORT INFORMATION
  Report Type: 
  Country: None (occurrence: None)
  Receive Date: 20090129
  Receipt Date: 20090122
  Transmission Date: 20090719
  Serious: No
  Sender: FDA-Public Use
  Company Number: US-B.I. PHARMACEUTICALS,INC./RIDGEFIELD-2009-BP-00131BP

PATIENT
  Sex: Female

DRUGS (14)
  1. SPIRIVA [Suspect]
     Indication: ASTHMA
     Dosage: 18MCG
     Route: 055
     Dates: start: 20071101, end: 20081216
  2. SPIRIVA [Suspect]
     Indication: BRONCHITIS CHRONIC
  3. ADVAIR DISKUS 100/50 [Concomitant]
  4. PROTONIX [Concomitant]
     Indication: GASTROOESOPHAGEAL REFLUX DISEASE
  5. ACTONEL [Concomitant]
     Indication: OSTEOPOROSIS
  6. CRESTOR [Concomitant]
     Indication: BLOOD CHOLESTEROL INCREASED
     Dosage: 20MG
  7. PROVENTIL-HFA [Concomitant]
  8. CLARINEX [Concomitant]
     Indication: HYPERSENSITIVITY
  9. FOLTX [Concomitant]
  10. COQ10 [Concomitant]
  11. MULTI-VITAMIN [Concomitant]
  12. CALCIUM + D [Concomitant]
  13. MIRALAX [Concomitant]
  14. LOVAZA [Concomitant]
     Dosage: 4000MG

REACTIONS (3)
  - CONDITION AGGRAVATED [None]
  - LUNG INFECTION [None]
  - PRODUCTIVE COUGH [None]
